FAERS Safety Report 11788305 (Version 1)
Quarter: 2015Q4

REPORT INFORMATION
  Report Type: Spontaneous
  Country: US (occurrence: US)
  Receive Date: 20151201
  Receipt Date: 20151201
  Transmission Date: 20160305
  Serious: No
  Sender: FDA-Public Use
  Company Number: US-APOTEX-2015AP006290

PATIENT
  Age: 34 Year
  Sex: Male

DRUGS (1)
  1. NICOTINE TRANSDERMAL SYSTEM [Suspect]
     Active Substance: NICOTINE
     Dosage: 1 DF, QD
     Route: 062
     Dates: start: 20150116, end: 20150118

REACTIONS (4)
  - Product adhesion issue [Unknown]
  - Application site pruritus [Recovered/Resolved]
  - Drug ineffective [Not Recovered/Not Resolved]
  - Application site rash [Recovered/Resolved]

NARRATIVE: CASE EVENT DATE: 20150116
